FAERS Safety Report 5650809-1 (Version None)
Quarter: 2008Q1

REPORT INFORMATION
  Report Type: 
  Country: None (occurrence: None)
  Receive Date: 20080305
  Receipt Date: 20080304
  Transmission Date: 20080703
  Serious: Yes (Other)
  Sender: FDA-Public Use
  Company Number: A0702983A

PATIENT
  Sex: Female

DRUGS (3)
  1. ALLI [Suspect]
     Indication: WEIGHT LOSS DIET
     Route: 048
     Dates: start: 20080102
  2. WELLBUTRIN [Concomitant]
     Dosage: 300MG IN THE MORNING
  3. BC [Concomitant]

REACTIONS (14)
  - DYSGEUSIA [None]
  - FEAR [None]
  - FEELING ABNORMAL [None]
  - GASTROENTERITIS VIRAL [None]
  - GASTROINTESTINAL DISORDER [None]
  - GASTROINTESTINAL PAIN [None]
  - LIP PAIN [None]
  - MUSCLE SPASMS [None]
  - ORAL HERPES [None]
  - PAIN IN EXTREMITY [None]
  - PRURITUS [None]
  - SKIN LACERATION [None]
  - THERMAL BURN [None]
  - VOMITING [None]
